FAERS Safety Report 13055831 (Version 7)
Quarter: 2017Q3

REPORT INFORMATION
  Report Type: Report from Study
  Country: US (occurrence: US)
  Receive Date: 20161222
  Receipt Date: 20170704
  Transmission Date: 20171127
  Serious: Yes (Life-Threatening, Hospitalization)
  Sender: FDA-Public Use
  Company Number: PHHO2016US018322

PATIENT
  Age: 49 Year
  Sex: Female
  Weight: 63 kg

DRUGS (5)
  1. GSK1120212 [Suspect]
     Active Substance: TRAMETINIB
     Dosage: 2 MG, QD
     Route: 048
     Dates: start: 20161206, end: 20161214
  2. GSK2118436 [Suspect]
     Active Substance: DABRAFENIB
     Dosage: 75 MG, BID
     Route: 048
     Dates: start: 20161229
  3. GSK1120212 [Suspect]
     Active Substance: TRAMETINIB
     Dosage: 1.5 MG, QD
     Route: 048
     Dates: start: 20161215
  4. GSK2118436 [Suspect]
     Active Substance: DABRAFENIB
     Indication: THYROID CANCER
     Dosage: 75 MG, BID
     Route: 048
     Dates: start: 20161114, end: 20161205
  5. GSK1120212 [Suspect]
     Active Substance: TRAMETINIB
     Indication: THYROID CANCER
     Dosage: 2 MG, QD
     Route: 048
     Dates: start: 20161114, end: 20161205

REACTIONS (4)
  - Pneumonia [Recovered/Resolved]
  - Syncope [Recovered/Resolved]
  - Pleural effusion [Recovered/Resolved with Sequelae]
  - Dehydration [Recovered/Resolved]

NARRATIVE: CASE EVENT DATE: 20161206
